FAERS Safety Report 25379204 (Version 1)
Quarter: 2025Q2

REPORT INFORMATION
  Report Type: Spontaneous
  Country: US (occurrence: None)
  Receive Date: 20250529
  Receipt Date: 20250529
  Transmission Date: 20250717
  Serious: Yes (Disabling)
  Sender: FDA-CTU
  Company Number: None

PATIENT
  Age: 43 Year
  Sex: Female
  Weight: 65.25 kg

DRUGS (1)
  1. GADAVIST [Suspect]
     Active Substance: GADOBUTROL
     Indication: Magnetic resonance imaging
     Route: 042
     Dates: start: 20230515, end: 20241114

REACTIONS (7)
  - Dysgeusia [None]
  - Headache [None]
  - Brain fog [None]
  - Urinary tract pain [None]
  - Micturition urgency [None]
  - Pollakiuria [None]
  - Cognitive disorder [None]

NARRATIVE: CASE EVENT DATE: 20241114
